FAERS Safety Report 5672979-1 (Version None)
Quarter: 2008Q1

REPORT INFORMATION
  Report Type: 
  Country: None (occurrence: None)
  Receive Date: 20080319
  Receipt Date: 20080314
  Transmission Date: 20080703
  Serious: Yes (Life-Threatening)
  Sender: FDA-Public Use
  Company Number: B0510490A

PATIENT
  Age: 41 Year
  Sex: Male
  Weight: 71 kg

DRUGS (6)
  1. VENTOLIN [Suspect]
     Dosage: 200MCG AS REQUIRED
     Route: 055
     Dates: start: 20080213, end: 20080213
  2. VENTOLIN DA [Concomitant]
     Dosage: 100MCG AS REQUIRED
     Route: 055
     Dates: end: 20080213
  3. SEREVENT [Concomitant]
     Indication: BRONCHITIS
     Route: 055
     Dates: start: 20080205
  4. CLARITHROMYCIN [Concomitant]
     Indication: BRONCHITIS
     Route: 048
     Dates: start: 20080205
  5. FLUIMUCIL [Concomitant]
     Indication: BRONCHITIS
     Route: 048
     Dates: start: 20080205
  6. SERETIDE [Concomitant]
     Indication: DRUG USE FOR UNKNOWN INDICATION
     Route: 055
     Dates: start: 20070101

REACTIONS (1)
  - ASTHMA [None]
